FAERS Safety Report 7967686-6 (Version None)
Quarter: 2011Q4

REPORT INFORMATION
  Report Type: 
  Country: None (occurrence: None)
  Receive Date: 20111207
  Receipt Date: 20111125
  Transmission Date: 20120403
  Serious: Yes (Death, Other)
  Sender: FDA-Public Use
  Company Number: 1000025960

PATIENT

DRUGS (3)
  1. ONDANSETRON [Concomitant]
  2. PHENERGEN (PROMETHAZINE)(TABLETS) [Concomitant]
  3. LEXAPRO [Suspect]
     Dosage: 30 MG (30 MG, 1 IN 1 D), TRANSPLACENTAL
     Route: 064

REACTIONS (3)
  - OVERDOSE [None]
  - FOETAL EXPOSURE DURING PREGNANCY [None]
  - PREMATURE BABY [None]
